FAERS Safety Report 8288173-4 (Version None)
Quarter: 2012Q2

REPORT INFORMATION
  Report Type: 
  Country: None (occurrence: None)
  Receive Date: 20120416
  Receipt Date: 20120411
  Transmission Date: 20120825
  Serious: No
  Sender: FDA-Public Use
  Company Number: US-BAYER-2012-036382

PATIENT
  Age: 51 Year
  Sex: Male

DRUGS (1)
  1. ULTRAVIST 150 [Suspect]
     Indication: COMPUTERISED TOMOGRAM
     Dosage: 100 ML VIAL: 92 CC
     Route: 042
     Dates: start: 20120320, end: 20120320

REACTIONS (1)
  - URTICARIA [None]
